FAERS Safety Report 6190301-1 (Version None)
Quarter: 2009Q2

REPORT INFORMATION
  Report Type: 
  Country: None (occurrence: None)
  Receive Date: 20090514
  Receipt Date: 20090508
  Transmission Date: 20091009
  Serious: Yes (Other)
  Sender: FDA-Public Use
  Company Number: A0783213A

PATIENT
  Age: 37 Year
  Sex: Female

DRUGS (3)
  1. WELLBUTRIN [Suspect]
     Indication: DEPRESSION
     Dosage: 150MG TWICE PER DAY
     Route: 048
     Dates: start: 20090422
  2. TRAZODONE HCL [Concomitant]
  3. UNKNOWN [Concomitant]

REACTIONS (3)
  - AGGRESSION [None]
  - FEELING ABNORMAL [None]
  - MANIA [None]
